FAERS Safety Report 14146156 (Version 5)
Quarter: 2018Q2

REPORT INFORMATION
  Report Type: Spontaneous
  Country: NL (occurrence: NL)
  Receive Date: 20171031
  Receipt Date: 20180426
  Transmission Date: 20180711
  Serious: Yes (Hospitalization)
  Sender: FDA-Public Use
  Company Number: NL-GLAXOSMITHKLINE-NL2017GSK164100

PATIENT
  Age: 22 Year
  Sex: Female

DRUGS (1)
  1. FLOLAN [Suspect]
     Active Substance: EPOPROSTENOL SODIUM
     Indication: PRODUCT USED FOR UNKNOWN INDICATION
     Dosage: 1.5 MG, UNK

REACTIONS (4)
  - Product quality issue [Unknown]
  - Device occlusion [Recovered/Resolved]
  - Fear of death [Unknown]
  - Insomnia [Unknown]

NARRATIVE: CASE EVENT DATE: 201710
